FAERS Safety Report 5923200-8 (Version None)
Quarter: 2008Q4

REPORT INFORMATION
  Report Type: 
  Country: None (occurrence: None)
  Receive Date: 20081020
  Receipt Date: 20081010
  Transmission Date: 20090506
  Serious: Yes (Hospitalization, Other)
  Sender: FDA-Public Use
  Company Number: US-BAYER-200832020NA

PATIENT
  Sex: Female

DRUGS (5)
  1. AVELOX [Suspect]
     Indication: CELLULITIS
     Dosage: AS USED: 400 MG  UNIT DOSE: 400 MG
     Route: 048
     Dates: start: 20080731
  2. NOVOLOG [Concomitant]
  3. SYNTHROID [Concomitant]
  4. LIPITOR [Concomitant]
  5. PREVACID [Concomitant]

REACTIONS (10)
  - ANAPHYLACTIC REACTION [None]
  - ANXIETY [None]
  - CELLULITIS [None]
  - OROPHARYNGEAL SWELLING [None]
  - PRURITUS [None]
  - RASH MACULAR [None]
  - SPEECH DISORDER [None]
  - SWOLLEN TONGUE [None]
  - URTICARIA [None]
  - VENTRICULAR TACHYCARDIA [None]
